FAERS Safety Report 6242519-7 (Version None)
Quarter: 2009Q2

REPORT INFORMATION
  Report Type: 
  Country: None (occurrence: None)
  Receive Date: 20090622
  Receipt Date: 20090622
  Transmission Date: 20091009
  Serious: No
  Sender: FDA-Public Use
  Company Number: None

PATIENT
  Age: 56 Year
  Sex: Male
  Weight: 77.1115 kg

DRUGS (2)
  1. ZICAM ZICAM, LLC [Suspect]
     Indication: INFLUENZA
     Dosage: 2 SPRAYS TWICE DAILY NASAL
     Route: 045
     Dates: start: 20080101, end: 20090331
  2. ZICAM ZICAM, LLC [Suspect]
     Indication: NASOPHARYNGITIS
     Dosage: 2 SPRAYS TWICE DAILY NASAL
     Route: 045
     Dates: start: 20080101, end: 20090331

REACTIONS (1)
  - HYPOSMIA [None]
